FAERS Safety Report 5133925-2 (Version None)
Quarter: 2006Q4

REPORT INFORMATION
  Report Type: 
  Country: None (occurrence: None)
  Receive Date: 20061023
  Receipt Date: 20061023
  Transmission Date: 20070319
  Serious: No
  Sender: FDA-Public Use
  Company Number: None

PATIENT
  Age: 80 Year
  Sex: Male
  Weight: 77.1115 kg

DRUGS (1)
  1. FLOMAX [Suspect]
     Indication: BENIGN PROSTATIC HYPERPLASIA
     Dosage: 0.4 MG   ONE PER DAY  PO
     Route: 048
     Dates: start: 20000101, end: 20060221

REACTIONS (6)
  - CATARACT OPERATION COMPLICATION [None]
  - IMPAIRED HEALING [None]
  - MACULAR DEGENERATION [None]
  - PUPILLARY REFLEX IMPAIRED [None]
  - VISION BLURRED [None]
  - VISUAL ACUITY REDUCED [None]
